FAERS Safety Report 4328192-3 (Version None)
Quarter: 2004Q1

REPORT INFORMATION
  Report Type: 
  Country: None (occurrence: None)
  Receive Date: 20040331
  Receipt Date: 20040302
  Transmission Date: 20041129
  Serious: Yes (Death)
  Sender: FDA-Public Use
  Company Number: FR-GLAXOSMITHKLINE-B0325219A

PATIENT
  Age: 25 Day
  Sex: Female
  Weight: 3.5 kg

DRUGS (5)
  1. RETROVIR [Suspect]
     Indication: ANTIVIRAL PROPHYLAXIS
     Dosage: 6MG FOUR TIMES PER DAY
     Route: 048
     Dates: start: 20040119
  2. RETROVIR [Suspect]
     Dosage: 210MG PER DAY
     Dates: start: 20040119, end: 20040119
  3. EPIVIR [Suspect]
     Dosage: 1TAB PER DAY
     Dates: start: 20030101, end: 20040119
  4. ENGERIX-B [Concomitant]
     Indication: ANTIVIRAL PROPHYLAXIS
     Dates: start: 20040127, end: 20040127
  5. METHADONE [Concomitant]

REACTIONS (3)
  - HEPATIC STEATOSIS [None]
  - MATERNAL DRUGS AFFECTING FOETUS [None]
  - SUDDEN DEATH [None]
